FAERS Safety Report 7263307-9 (Version None)
Quarter: 2011Q1

REPORT INFORMATION
  Report Type: 
  Country: None (occurrence: None)
  Receive Date: 20110130
  Receipt Date: 20101207
  Transmission Date: 20110831
  Serious: No
  Sender: FDA-Public Use
  Company Number: US-ABBOTT-10P-163-0673123-00

PATIENT
  Age: 36 Year
  Sex: Female

DRUGS (6)
  1. PENTASA [Concomitant]
     Indication: CROHN'S DISEASE
     Route: 048
  2. LEXAPRO [Concomitant]
     Indication: DEPRESSION
     Route: 048
  3. HUMIRA [Suspect]
     Dosage: HELD DOSE
     Dates: end: 20100929
  4. HUMIRA [Suspect]
     Indication: CROHN'S DISEASE
     Dates: start: 20100915
  5. LORTAB [Concomitant]
     Indication: PAIN
     Dosage: 5/500 PRN
  6. PREDNISONE [Concomitant]
     Indication: CROHN'S DISEASE
     Route: 048
     Dates: start: 20100728

REACTIONS (13)
  - PYREXIA [None]
  - APHONIA [None]
  - INJECTION SITE WARMTH [None]
  - COUGH [None]
  - RHINORRHOEA [None]
  - DRUG INEFFECTIVE [None]
  - VIRAL INFECTION [None]
  - INJECTION SITE ERYTHEMA [None]
  - RESPIRATORY TRACT INFECTION [None]
  - DYSPHONIA [None]
  - NASOPHARYNGITIS [None]
  - INJECTION SITE PRURITUS [None]
  - INJECTION SITE PAIN [None]
